FAERS Safety Report 10396546 (Version 1)
Quarter: 2014Q3

REPORT INFORMATION
  Report Type: Spontaneous
  Country: US (occurrence: None)
  Receive Date: 20140819
  Receipt Date: 20140819
  Transmission Date: 20150326
  Serious: Yes (Disabling)
  Sender: FDA-Public Use
  Company Number: None

PATIENT
  Age: 19 Year
  Sex: Female
  Weight: 63.5 kg

DRUGS (2)
  1. LAMOTRIGINE. [Suspect]
     Active Substance: LAMOTRIGINE
     Indication: DEPRESSION
     Dosage: 1 PILL DAILY  ONCE DAILY TAKEN BY MOUTH
     Route: 048
     Dates: start: 20120801, end: 20131201
  2. LAMOTRIGINE. [Suspect]
     Active Substance: LAMOTRIGINE
     Indication: ANXIETY
     Dosage: 1 PILL DAILY  ONCE DAILY TAKEN BY MOUTH
     Route: 048
     Dates: start: 20120801, end: 20131201

REACTIONS (3)
  - Chest pain [None]
  - Pain [None]
  - Fibromyalgia [None]

NARRATIVE: CASE EVENT DATE: 20120912
